FAERS Safety Report 13209091 (Version 1)
Quarter: 2017Q1

REPORT INFORMATION
  Report Type: Other
  Country: CN (occurrence: CN)
  Receive Date: 20170209
  Receipt Date: 20170209
  Transmission Date: 20170428
  Serious: Yes (Other)
  Sender: FDA-Public Use
  Company Number: CN-ALSI-201700043

PATIENT
  Age: 54 Year
  Sex: Female

DRUGS (1)
  1. OXYGEN-OZONE GAS [Suspect]
     Active Substance: OXYGEN\OZONE
     Indication: INTERVERTEBRAL DISC PROTRUSION
     Route: 008

REACTIONS (3)
  - Off label use [Recovered/Resolved]
  - Pneumocephalus [Recovered/Resolved]
  - Drug administered at inappropriate site [Recovered/Resolved]
